FAERS Safety Report 23079050 (Version 1)
Quarter: 2023Q4

REPORT INFORMATION
  Report Type: Spontaneous
  Country: US (occurrence: None)
  Receive Date: 20231018
  Receipt Date: 20231018
  Transmission Date: 20240109
  Serious: No
  Sender: FDA-Public Use
  Company Number: None

PATIENT
  Sex: 0

DRUGS (1)
  1. DEXAMETHASONE [Suspect]
     Active Substance: DEXAMETHASONE

REACTIONS (6)
  - Back pain [None]
  - Eye injury [None]
  - Visual impairment [None]
  - Hemihypoaesthesia [None]
  - Back pain [None]
  - Pre-existing condition improved [None]
